FAERS Safety Report 12429673 (Version 1)
Quarter: 2016Q2

REPORT INFORMATION
  Report Type: Spontaneous
  Country: US (occurrence: US)
  Receive Date: 20160602
  Receipt Date: 20160602
  Transmission Date: 20160815
  Serious: No
  Sender: FDA-Public Use
  Company Number: ALCN2016US003760

PATIENT
  Age: 63 Year
  Sex: Female
  Weight: 53.97 kg

DRUGS (2)
  1. PREDNISOLONE ACETATE. [Suspect]
     Active Substance: PREDNISOLONE ACETATE
     Indication: EYE INFECTION VIRAL
     Dosage: 1 GTT, QID
     Route: 047
     Dates: start: 20160511
  2. PREDNISOLONE ACETATE. [Suspect]
     Active Substance: PREDNISOLONE ACETATE
     Indication: EYE SWELLING
     Dosage: 1 GTT, BID
     Route: 047

REACTIONS (3)
  - Contraindicated drug administered [Not Recovered/Not Resolved]
  - Vision blurred [Not Recovered/Not Resolved]
  - Eye irritation [Not Recovered/Not Resolved]

NARRATIVE: CASE EVENT DATE: 20160511
